FAERS Safety Report 10704878 (Version 1)
Quarter: 2014Q4

REPORT INFORMATION
  Report Type: Spontaneous
  Country: US (occurrence: US)
  Receive Date: 20141208
  Receipt Date: 20141208
  Transmission Date: 20150529
  Serious: Yes (Other)
  Sender: FDA-Public Use
  Company Number: US-APOTEX-2014AP005988

PATIENT
  Sex: Female

DRUGS (5)
  1. OXYCODONE, PARACETAMOL [Suspect]
     Active Substance: ACETAMINOPHEN\OXYCODONE HYDROCHLORIDE
     Indication: PAIN
     Dosage: 7.5/325MG, UP TO 3 TIMES DAILY
     Route: 065
  2. OXYCODONE [Suspect]
     Active Substance: OXYCODONE
     Dosage: 130MG DAILY
     Route: 065
  3. BUPRENORPHINE [Suspect]
     Active Substance: BUPRENORPHINE
     Indication: DRUG WITHDRAWAL SYNDROME
     Dosage: UNK
     Route: 065
  4. GABAPENTIN. [Suspect]
     Active Substance: GABAPENTIN
     Indication: NEUROPATHY PERIPHERAL
     Dosage: UNK
     Route: 065
  5. OXYCODONE [Suspect]
     Active Substance: OXYCODONE
     Indication: PAIN
     Dosage: 10 MG, UNKNOWN
     Route: 065

REACTIONS (5)
  - Cognitive disorder [Unknown]
  - Drug abuse [Unknown]
  - Exposure during pregnancy [Unknown]
  - Drug withdrawal syndrome [Unknown]
  - Drug dependence [Unknown]
